FAERS Safety Report 8490268-7 (Version None)
Quarter: 2012Q3

REPORT INFORMATION
  Report Type: 
  Country: None (occurrence: None)
  Receive Date: 20120705
  Receipt Date: 20120323
  Transmission Date: 20120928
  Serious: No
  Sender: FDA-Public Use
  Company Number: US-BAUSCH-2012BL002089

PATIENT
  Age: 55 Year
  Sex: Female

DRUGS (2)
  1. OPCON-A [Suspect]
     Indication: HYPERSENSITIVITY
     Route: 047
     Dates: start: 20120321
  2. ALAVERT /USA/ [Concomitant]
     Indication: HYPERSENSITIVITY
     Route: 048

REACTIONS (1)
  - INSOMNIA [None]
